FAERS Safety Report 6155953-0 (Version None)
Quarter: 2009Q2

REPORT INFORMATION
  Report Type: 
  Country: None (occurrence: None)
  Receive Date: 20090415
  Receipt Date: 20090414
  Transmission Date: 20091009
  Serious: Yes (Hospitalization)
  Sender: FDA-Public Use
  Company Number: AR-BRISTOL-MYERS SQUIBB COMPANY-13892807

PATIENT
  Age: 70 Year
  Sex: Male
  Weight: 116 kg

DRUGS (4)
  1. CETUXIMAB [Suspect]
     Indication: COLON CANCER METASTATIC
     Route: 042
     Dates: start: 20070816
  2. FLUOROURACIL [Suspect]
     Indication: COLON CANCER METASTATIC
     Route: 042
     Dates: start: 20070816
  3. OXALIPLATIN [Suspect]
     Indication: COLON CANCER METASTATIC
     Route: 042
     Dates: start: 20070816
  4. FOLINIC ACID [Concomitant]
     Indication: COLON CANCER METASTATIC
     Route: 042
     Dates: start: 20070816

REACTIONS (4)
  - ABDOMINAL PAIN [None]
  - DEHYDRATION [None]
  - DIARRHOEA [None]
  - VOMITING [None]
